FAERS Safety Report 6938715-3 (Version None)
Quarter: 2010Q3

REPORT INFORMATION
  Report Type: 
  Country: None (occurrence: None)
  Receive Date: 20100824
  Receipt Date: 20100811
  Transmission Date: 20110219
  Serious: Yes (Hospitalization, Other)
  Sender: FDA-Public Use
  Company Number: PHHY2009TW60975

PATIENT
  Sex: Male

DRUGS (3)
  1. GLEEVEC [Suspect]
     Indication: GASTROINTESTINAL STROMAL TUMOUR
     Dosage: 400 MG
     Route: 048
     Dates: start: 20090822
  2. GLEEVEC [Suspect]
     Dosage: 800 MG
     Route: 048
  3. BLOOD AND RELATED PRODUCTS [Concomitant]

REACTIONS (7)
  - ANAEMIA [None]
  - HAEMOGLOBIN DECREASED [None]
  - HAEMORRHAGE [None]
  - MELAENA [None]
  - PYREXIA [None]
  - TUMOUR ULCERATION [None]
  - WHITE BLOOD CELL COUNT DECREASED [None]
